FAERS Safety Report 11707082 (Version 1)
Quarter: 2015Q4

REPORT INFORMATION
  Report Type: Spontaneous
  Country: US (occurrence: US)
  Receive Date: 20151104
  Receipt Date: 20151104
  Transmission Date: 20160304
  Serious: No
  Sender: FDA-Public Use
  Company Number: US-ELI_LILLY_AND_COMPANY-US201012005910

PATIENT
  Age: 61 Year
  Sex: Female
  Weight: 70.3 kg

DRUGS (17)
  1. FORTEO [Suspect]
     Active Substance: TERIPARATIDE
     Indication: OSTEOPOROSIS
     Dosage: 20 UG, DAILY (1/D)
     Route: 058
     Dates: start: 20101020
  2. HYDROCODONE W/ACETAMINOPHEN [Concomitant]
     Active Substance: ACETAMINOPHEN\HYDROCODONE BITARTRATE
     Dosage: UNK, AS NEEDED
     Route: 048
     Dates: end: 20101226
  3. MULTIPLE VITAMINS [Concomitant]
     Active Substance: VITAMINS
     Dosage: 1 D/F, DAILY (1/D)
     Route: 048
  4. METHOTREXATE SODIUM. [Concomitant]
     Active Substance: METHOTREXATE SODIUM
     Dosage: 5 D/F, WEEKLY (1/W)
     Route: 048
  5. FIORICET [Concomitant]
     Active Substance: ACETAMINOPHEN\BUTALBITAL\CAFFEINE
     Indication: MIGRAINE
     Route: 048
     Dates: start: 20110103, end: 20110206
  6. DIVIGEL [Concomitant]
     Active Substance: ESTRADIOL
     Dosage: 0.25 MG, DAILY (1/D)
  7. FIORICET [Concomitant]
     Active Substance: ACETAMINOPHEN\BUTALBITAL\CAFFEINE
     Dosage: 2 D/F, Q4H
     Route: 048
     Dates: start: 20110207
  8. ATENOLOL. [Concomitant]
     Active Substance: ATENOLOL
     Dosage: 1 D/F, QHS
     Route: 048
     Dates: start: 20101230, end: 20110202
  9. TETRACYCLINE [Concomitant]
     Active Substance: TETRACYCLINE
     Indication: ROSACEA
  10. FOLIC ACID. [Concomitant]
     Active Substance: FOLIC ACID
     Dosage: 1 D/F, DAILY (1/D)
     Route: 048
  11. DIVIGEL [Concomitant]
     Active Substance: ESTRADIOL
     Dosage: 1 MG, DAILY (1/D)
  12. ACETAMINOPHEN AND CODEINE [Concomitant]
     Active Substance: ACETAMINOPHEN\CODEINE PHOSPHATE
     Indication: PAIN
     Dosage: 2 D/F, Q6H
     Route: 048
  13. VERAPAMIL [Concomitant]
     Active Substance: VERAPAMIL HYDROCHLORIDE
     Dosage: 1 D/F, QHS
     Route: 048
     Dates: start: 20110103
  14. FORTEO [Suspect]
     Active Substance: TERIPARATIDE
     Dosage: 20 UG, DAILY (1/D)
     Route: 058
  15. CALCIUM [Concomitant]
     Active Substance: CALCIUM
     Indication: MINERAL SUPPLEMENTATION
     Dosage: 1200 MG, DAILY (1/D)
     Route: 048
     Dates: end: 20110202
  16. VITAMIN D [Concomitant]
     Active Substance: CHOLECALCIFEROL
     Indication: VITAMIN SUPPLEMENTATION
     Dosage: 5 D/F, DAILY (1/D)
     Route: 048
  17. METROGEL [Concomitant]
     Active Substance: METRONIDAZOLE
     Route: 061

REACTIONS (8)
  - Dysstasia [Recovered/Resolved]
  - Headache [Recovered/Resolved]
  - Vitamin D deficiency [Unknown]
  - Intentional product misuse [Unknown]
  - Palpitations [Recovered/Resolved]
  - Tremor [Recovered/Resolved]
  - Insomnia [Recovered/Resolved]
  - Nausea [Recovered/Resolved]

NARRATIVE: CASE EVENT DATE: 20101111
